FAERS Safety Report 17283455 (Version 2)
Quarter: 2020Q2

REPORT INFORMATION
  Report Type: Spontaneous
  Country: DE (occurrence: DE)
  Receive Date: 20200117
  Receipt Date: 20200409
  Transmission Date: 20200713
  Serious: Yes (Hospitalization)
  Sender: FDA-Public Use
  Company Number: DE-TEVA-2020-DE-1168121

PATIENT
  Sex: Female

DRUGS (1)
  1. COPAXONE [Suspect]
     Active Substance: GLATIRAMER ACETATE
     Indication: MULTIPLE SCLEROSIS
     Dosage: 20 MILLIGRAM DAILY; FOR 1-2 MONTHS,  REPEATEDLY DURING THIS TIME PERIOD
     Route: 065
     Dates: start: 2004, end: 2013

REACTIONS (4)
  - Anembryonic gestation [Unknown]
  - Abortion induced [Unknown]
  - Maternal exposure during pregnancy [Unknown]
  - Inappropriate schedule of product administration [Recovered/Resolved]

NARRATIVE: CASE EVENT DATE: 2004
